FAERS Safety Report 24023922 (Version 1)
Quarter: 2024Q2

REPORT INFORMATION
  Report Type: Report from Study
  Country: CN (occurrence: CN)
  Receive Date: 20240627
  Receipt Date: 20240627
  Transmission Date: 20240716
  Serious: No
  Sender: FDA-Public Use
  Company Number: CN-ROCHE-3250638

PATIENT
  Age: 64 Year
  Sex: Male
  Weight: 66.0 kg

DRUGS (1)
  1. ALECENSA [Suspect]
     Active Substance: ALECTINIB HYDROCHLORIDE
     Indication: Lung neoplasm malignant
     Dosage: 150MG * 224CAPSULES
     Route: 048
     Dates: start: 20221016

REACTIONS (7)
  - Faeces hard [Recovering/Resolving]
  - Oropharyngeal pain [Recovering/Resolving]
  - Weight increased [Not Recovered/Not Resolved]
  - Anaemia [Recovering/Resolving]
  - Skin disorder [Not Recovered/Not Resolved]
  - Productive cough [Not Recovered/Not Resolved]
  - Hyperhidrosis [Unknown]

NARRATIVE: CASE EVENT DATE: 20221026
